FAERS Safety Report 16102105 (Version 1)
Quarter: 2019Q1

REPORT INFORMATION
  Report Type: Spontaneous
  Country: JP (occurrence: JP)
  Receive Date: 20190321
  Receipt Date: 20190321
  Transmission Date: 20190418
  Serious: Yes (Other)
  Sender: FDA-Public Use
  Company Number: JP-PFIZER INC-2019123266

PATIENT
  Age: 26 Year
  Sex: Male

DRUGS (1)
  1. ANCARON [Suspect]
     Active Substance: AMIODARONE HYDROCHLORIDE
     Indication: CARDIAC FAILURE
     Dosage: UNK
     Route: 065

REACTIONS (8)
  - Pyrexia [Recovering/Resolving]
  - Organ failure [Unknown]
  - Tachycardia [Recovering/Resolving]
  - Thyrotoxic crisis [Unknown]
  - Blood thyroid stimulating hormone increased [Recovered/Resolved]
  - Thyroxine free increased [Unknown]
  - Hyperthyroidism [Unknown]
  - Thyroid hormones increased [Recovering/Resolving]
